FAERS Safety Report 9877080 (Version 2)
Quarter: 2014Q1

REPORT INFORMATION
  Report Type: Spontaneous
  Country: DE (occurrence: DE)
  Receive Date: 20140206
  Receipt Date: 20140214
  Transmission Date: 20141002
  Serious: Yes (Other)
  Sender: FDA-Public Use
  Company Number: DE-JNJFOC-20140201424

PATIENT
  Age: 77 Year
  Sex: Male
  Weight: 76 kg

DRUGS (5)
  1. XARELTO [Suspect]
     Indication: CEREBROVASCULAR ACCIDENT PROPHYLAXIS
     Route: 048
     Dates: start: 20130306, end: 20131011
  2. XARELTO [Suspect]
     Indication: ATRIAL FIBRILLATION
     Route: 048
     Dates: start: 20130306, end: 20131011
  3. SIMVASTATIN [Concomitant]
     Route: 065
  4. ALLOPURINOL [Concomitant]
     Route: 065
  5. CANDESARTAN [Concomitant]
     Route: 065

REACTIONS (3)
  - Seizure anoxic [Recovered/Resolved]
  - Syncope [Recovered/Resolved]
  - Cardiovascular disorder [Unknown]
